FAERS Safety Report 18549222 (Version 1)
Quarter: 2020Q4

REPORT INFORMATION
  Report Type: Spontaneous
  Country: US (occurrence: US)
  Receive Date: 20201126
  Receipt Date: 20201126
  Transmission Date: 20210114
  Serious: Yes (Hospitalization)
  Sender: FDA-Public Use
  Company Number: US-CADILA HEALTHCARE LIMITED-US-ZYDUS-058434

PATIENT

DRUGS (6)
  1. PHENTERMINE. [Suspect]
     Active Substance: PHENTERMINE
     Indication: BINGE EATING
     Dosage: 37.5 MILLIGRAM
     Route: 048
  2. LISDEXAMFETAMINE [Suspect]
     Active Substance: LISDEXAMFETAMINE
     Indication: OBESITY
  3. PHENTERMINE. [Suspect]
     Active Substance: PHENTERMINE
     Indication: DECREASED APPETITE
  4. LISDEXAMFETAMINE [Suspect]
     Active Substance: LISDEXAMFETAMINE
     Indication: BINGE EATING
     Dosage: 40 MILLIGRAM
     Route: 048
  5. PHENTERMINE. [Suspect]
     Active Substance: PHENTERMINE
     Indication: OBESITY
  6. LISDEXAMFETAMINE [Suspect]
     Active Substance: LISDEXAMFETAMINE
     Indication: DECREASED APPETITE

REACTIONS (2)
  - Product use in unapproved indication [Recovered/Resolved]
  - Stress cardiomyopathy [Recovered/Resolved]
